FAERS Safety Report 24747352 (Version 6)
Quarter: 2025Q1

REPORT INFORMATION
  Report Type: Spontaneous
  Country: US (occurrence: US)
  Receive Date: 20241218
  Receipt Date: 20250331
  Transmission Date: 20250409
  Serious: Yes (Hospitalization, Other)
  Sender: AUROBINDO
  Company Number: US-MLMSERVICE-20241202-PI278081-00174-1

PATIENT
  Age: 37 Year
  Sex: Female
  Weight: 43.3 kg

DRUGS (13)
  1. HALOPERIDOL [Suspect]
     Active Substance: HALOPERIDOL
     Indication: Psychotic disorder
     Route: 065
  2. HALOPERIDOL [Suspect]
     Active Substance: HALOPERIDOL
     Indication: Mania
  3. HALOPERIDOL [Suspect]
     Active Substance: HALOPERIDOL
     Indication: Agitation
  4. QUETIAPINE [Suspect]
     Active Substance: QUETIAPINE
     Indication: Bipolar disorder
     Route: 065
  5. QUETIAPINE [Suspect]
     Active Substance: QUETIAPINE
     Indication: Mania
  6. LORAZEPAM [Concomitant]
     Active Substance: LORAZEPAM
     Indication: Bipolar disorder
     Route: 042
  7. LORAZEPAM [Concomitant]
     Active Substance: LORAZEPAM
     Indication: Mania
     Dosage: 1.5 MILLIGRAM, 3 TIMES A DAY
     Route: 042
  8. METHIMAZOLE [Concomitant]
     Active Substance: METHIMAZOLE
     Indication: Hyperthyroidism
     Route: 065
  9. PROPRANOLOL [Concomitant]
     Active Substance: PROPRANOLOL HYDROCHLORIDE
     Indication: Hyperthyroidism
     Route: 065
  10. PROPYLTHIOURACIL [Concomitant]
     Active Substance: PROPYLTHIOURACIL
     Indication: Thyrotoxic crisis
     Route: 065
  11. PROPYLTHIOURACIL [Concomitant]
     Active Substance: PROPYLTHIOURACIL
     Indication: Graves^ disease
  12. POTASSIUM IODIDE [Concomitant]
     Active Substance: POTASSIUM IODIDE
     Indication: Thyrotoxic crisis
     Route: 065
  13. POTASSIUM IODIDE [Concomitant]
     Active Substance: POTASSIUM IODIDE
     Indication: Graves^ disease

REACTIONS (2)
  - Catatonia [Recovered/Resolved]
  - Drug ineffective [Unknown]
